FAERS Safety Report 18794267 (Version 2)
Quarter: 2021Q1

REPORT INFORMATION
  Report Type: Spontaneous
  Country: DE (occurrence: DE)
  Receive Date: 20210127
  Receipt Date: 20210205
  Transmission Date: 20210419
  Serious: Yes (Other)
  Sender: FDA-Public Use
  Company Number: DE-OTSUKA-2021_001957

PATIENT
  Age: 49 Year
  Sex: Female

DRUGS (4)
  1. BUPROPION. [Suspect]
     Active Substance: BUPROPION
     Indication: DEPRESSION
     Dosage: UP TO 300 MG
     Route: 065
     Dates: start: 2016
  2. BUPROPION. [Suspect]
     Active Substance: BUPROPION
     Dosage: 450?0?0 MG
     Route: 065
     Dates: start: 2019
  3. MILNACIPRAN [Suspect]
     Active Substance: MILNACIPRAN
     Indication: DEPRESSION
     Dosage: 50?50?0 MG
     Route: 065
     Dates: start: 2016
  4. ARIPIPRAZOLE. [Suspect]
     Active Substance: ARIPIPRAZOLE
     Indication: DEPRESSION
     Dosage: UNK (5?0?0 MG)
     Route: 065
     Dates: start: 2019

REACTIONS (4)
  - Product use in unapproved indication [Unknown]
  - Eye pain [Unknown]
  - Angle closure glaucoma [Unknown]
  - Headache [Unknown]

NARRATIVE: CASE EVENT DATE: 2019
